FAERS Safety Report 20654619 (Version 1)
Quarter: 2022Q1

REPORT INFORMATION
  Report Type: Spontaneous
  Country: US (occurrence: US)
  Receive Date: 20220330
  Receipt Date: 20220330
  Transmission Date: 20220423
  Serious: No
  Sender: FDA-Public Use
  Company Number: US-PFIZER INC-202101015918

PATIENT
  Age: 71 Year
  Sex: Female
  Weight: 58.97 kg

DRUGS (1)
  1. VARENICLINE TARTRATE [Suspect]
     Active Substance: VARENICLINE TARTRATE
     Indication: Smoking cessation therapy
     Dosage: 0.5 MG (1MG STARTER PACK, START WEEK 1: 0.5MG 3 CONTINUING WEEKS 1MG X 42 TABLETS)
     Dates: start: 20210428

REACTIONS (2)
  - Drug ineffective [Unknown]
  - Intentional product misuse [Unknown]
